FAERS Safety Report 12737370 (Version 10)
Quarter: 2017Q3

REPORT INFORMATION
  Report Type: Report from Study
  Country: BR (occurrence: BR)
  Receive Date: 20160912
  Receipt Date: 20170727
  Transmission Date: 20171127
  Serious: Yes (Hospitalization)
  Sender: FDA-Public Use
  Company Number: BR-SA-2016SA164172

PATIENT
  Age: 70 Year
  Sex: Female
  Weight: 47 kg

DRUGS (1)
  1. LEMTRADA [Suspect]
     Active Substance: ALEMTUZUMAB
     Indication: MULTIPLE SCLEROSIS
     Dosage: DOSE: 5 VIALS IN THE FIRST CYCLE
     Route: 041
     Dates: start: 20160628, end: 20160702

REACTIONS (20)
  - Bedridden [Not Recovered/Not Resolved]
  - Viral infection [Not Recovered/Not Resolved]
  - Urinary tract infection [Recovered/Resolved]
  - Aspiration bronchial [Recovered/Resolved]
  - Malnutrition [Not Recovered/Not Resolved]
  - Pneumonia [Recovered/Resolved]
  - Decubitus ulcer [Recovered/Resolved]
  - Eschar [Not Recovered/Not Resolved]
  - Speech disorder [Recovered/Resolved]
  - Diarrhoea [Not Recovered/Not Resolved]
  - Drug ineffective [Unknown]
  - Asthenia [Not Recovered/Not Resolved]
  - Condition aggravated [Recovered/Resolved]
  - Confusional state [Recovered/Resolved]
  - Muscle atrophy [Not Recovered/Not Resolved]
  - Asthenia [Recovered/Resolved]
  - Weight decreased [Not Recovered/Not Resolved]
  - Pain in extremity [Not Recovered/Not Resolved]
  - Infection [Recovered/Resolved]
  - Pyrexia [Recovered/Resolved]

NARRATIVE: CASE EVENT DATE: 201608
